FAERS Safety Report 7568677-X (Version None)
Quarter: 2011Q2

REPORT INFORMATION
  Report Type: 
  Country: None (occurrence: None)
  Receive Date: 20110617
  Receipt Date: 20110602
  Transmission Date: 20111010
  Serious: Yes (Disabling)
  Sender: FDA-Public Use
  Company Number: AUR-APL-2011-02499

PATIENT
  Age: 75 Year
  Sex: Female

DRUGS (10)
  1. ASPIRIN [Concomitant]
  2. CLOPIDOGREL [Concomitant]
  3. ZOPICLONE (ZOPICLONE) [Concomitant]
  4. GTN (GLYCERYL TRINITRATE) [Concomitant]
  5. NICOTINE [Concomitant]
  6. RAMIPRIL [Concomitant]
  7. CODEINE SULFATE [Concomitant]
  8. BISOPROLOL FUMARATE [Suspect]
     Indication: ACUTE MYOCARDIAL INFARCTION
     Dosage: 2.5 MG (2.5 MG,1 IN 1 D),ORAL
     Route: 048
     Dates: start: 20110509
  9. ATORVASTATIN [Concomitant]
  10. RANITIDINE [Concomitant]

REACTIONS (5)
  - DYSPNOEA [None]
  - EXERCISE TOLERANCE DECREASED [None]
  - LETHARGY [None]
  - FATIGUE [None]
  - MALAISE [None]
